FAERS Safety Report 8478747-X (Version None)
Quarter: 2012Q2

REPORT INFORMATION
  Report Type: 
  Country: None (occurrence: None)
  Receive Date: 20120629
  Receipt Date: 20120619
  Transmission Date: 20120825
  Serious: Yes (Hospitalization)
  Sender: FDA-Public Use
  Company Number: JP-JNJFOC-20091003759

PATIENT
  Sex: Male
  Weight: 54 kg

DRUGS (26)
  1. REMICADE [Suspect]
     Route: 042
     Dates: start: 20080507
  2. NEORAL [Suspect]
     Indication: BEHCET'S SYNDROME
     Route: 048
     Dates: start: 20090923
  3. PREDNISOLONE [Suspect]
     Dosage: STARTED ^BEFORE SEP-2007^
     Route: 048
     Dates: end: 20080825
  4. REMICADE [Suspect]
     Route: 042
     Dates: start: 20080326
  5. BAKTAR [Concomitant]
     Indication: PROPHYLAXIS
     Route: 048
  6. REMICADE [Suspect]
     Indication: BEHCET'S SYNDROME
     Route: 042
     Dates: start: 20080704
  7. NEORAL [Suspect]
     Route: 048
     Dates: start: 20080904, end: 20080904
  8. HALCION [Concomitant]
     Indication: INSOMNIA
     Dosage: STARTED ^BEFORE AUG-2008^
     Route: 048
  9. DEPAS [Concomitant]
     Indication: ANXIETY DISORDER
     Route: 048
  10. NEORAL [Suspect]
     Dosage: STARTED ^BEFORE SEP-2007^
     Route: 048
     Dates: end: 20080827
  11. PREDNISOLONE [Suspect]
     Route: 048
     Dates: start: 20080925, end: 20081118
  12. ALENDRONATE SODIUM [Concomitant]
     Indication: OSTEOPOROSIS
     Route: 048
  13. TIZANIDINE HYDROCHLORIDE [Concomitant]
     Indication: BACK PAIN
     Route: 048
  14. DIAZEPAM [Concomitant]
     Indication: INSOMNIA
     Route: 048
  15. VOLTAREN [Concomitant]
     Indication: BEHCET'S SYNDROME
     Route: 054
     Dates: start: 20080326
  16. REMICADE [Suspect]
     Route: 042
     Dates: start: 20080922
  17. PREDNISOLONE [Suspect]
     Route: 048
     Dates: start: 20080905, end: 20080924
  18. BAKTAR [Concomitant]
     Indication: BEHCET'S SYNDROME
     Route: 048
  19. REMICADE [Suspect]
     Route: 042
     Dates: start: 20080408
  20. NEORAL [Suspect]
     Route: 048
     Dates: start: 20080828, end: 20080903
  21. COLCHICINE [Concomitant]
     Indication: BEHCET'S SYNDROME
     Dosage: STARTED ^BEFORE SEP-2007^
     Route: 048
     Dates: end: 20081020
  22. PREDNISOLONE [Suspect]
     Indication: BEHCET'S SYNDROME
     Route: 048
     Dates: start: 20090226
  23. PREDNISOLONE [Suspect]
     Route: 048
     Dates: start: 20090111, end: 20090225
  24. PREDNISOLONE [Suspect]
     Route: 048
     Dates: start: 20080826, end: 20080904
  25. PREDNISOLONE [Suspect]
     Route: 048
     Dates: start: 20081119, end: 20090110
  26. MUCOSTA [Concomitant]
     Indication: PROPHYLAXIS
     Route: 048

REACTIONS (4)
  - MORAXELLA INFECTION [None]
  - CANDIDIASIS [None]
  - PNEUMONIA [None]
  - PNEUMOTHORAX [None]
